FAERS Safety Report 9807837 (Version 1)
Quarter: 2014Q1

REPORT INFORMATION
  Report Type: Spontaneous
  Country: US (occurrence: US)
  Receive Date: 20140110
  Receipt Date: 20140110
  Transmission Date: 20141002
  Serious: Yes (Hospitalization, Other)
  Sender: FDA-Public Use
  Company Number: US-TEVA-455008USA

PATIENT
  Age: 33 Year
  Sex: Female

DRUGS (7)
  1. NOREPINEPHRINE [Suspect]
     Indication: SHOCK
     Dosage: 0.2 MICROG/KG/MIN ON D5, THEN 1.2 MICROG/KG/MIN
     Route: 041
  2. NOREPINEPHRINE [Suspect]
     Indication: SHOCK
     Dosage: 1.2 MICROG/KG/MIN ON D6
     Route: 041
  3. PHENYLEPHRINE [Suspect]
     Indication: SHOCK
     Dosage: 1 MICROG/KG/MIN ON D4, THEN 2.5 MICROG/KG/MIN
     Route: 041
  4. PHENYLEPHRINE [Suspect]
     Indication: SHOCK
     Dosage: 2.5 MICROG/KG/MIN ON D5, THEN 4.3 MICROG/KG/MIN
     Route: 041
  5. PHENYLEPHRINE [Suspect]
     Indication: SHOCK
     Dosage: 4.3 MICROG/KG/MIN ON D6
     Route: 041
  6. PHENYLEPHRINE [Suspect]
     Indication: CEREBRAL VASOCONSTRICTION
     Route: 041
  7. ESMOLOL [Concomitant]
     Route: 050

REACTIONS (4)
  - Cardiogenic shock [Recovered/Resolved]
  - Pulmonary oedema [Recovered/Resolved]
  - Left ventricular dysfunction [Recovered/Resolved]
  - Respiratory failure [Recovered/Resolved]
